FAERS Safety Report 24906773 (Version 1)
Quarter: 2025Q1

REPORT INFORMATION
  Report Type: Spontaneous
  Country: US (occurrence: US)
  Receive Date: 20250130
  Receipt Date: 20250130
  Transmission Date: 20250408
  Serious: No
  Sender: SANOFI AVENTIS
  Company Number: US-SA-2025SA028913

PATIENT
  Sex: Female

DRUGS (19)
  1. DUPIXENT [Suspect]
     Active Substance: DUPILUMAB
     Indication: Asthma
     Dosage: 300.000MG QOW
     Route: 058
  2. CALCIUM [Concomitant]
     Active Substance: CALCIUM
  3. FLAXSEED [Concomitant]
     Active Substance: FLAX SEED
  4. MAGNESIUM [Concomitant]
     Active Substance: MAGNESIUM
  5. VITAMINS [Concomitant]
     Active Substance: VITAMINS
  6. TYLENOL [Concomitant]
     Active Substance: ACETAMINOPHEN
  7. VITAMIN D [Concomitant]
     Active Substance: VITAMIN D NOS
  8. AMITRIPTYLINE [Concomitant]
     Active Substance: AMITRIPTYLINE
  9. PREGABALIN [Concomitant]
     Active Substance: PREGABALIN
  10. RESTASIS [Concomitant]
     Active Substance: CYCLOSPORINE
  11. ZYRTEC [Concomitant]
     Active Substance: CETIRIZINE HYDROCHLORIDE
  12. BREZTRI [Concomitant]
     Active Substance: BUDESONIDE\FORMOTEROL\GLYCOPYRROLATE
  13. LEVALBUTEROL [Concomitant]
     Active Substance: LEVALBUTEROL
  14. LISINOPRIL [Concomitant]
     Active Substance: LISINOPRIL
  15. BACLOFEN [Concomitant]
     Active Substance: BACLOFEN
  16. DICLOFENAC [Concomitant]
     Active Substance: DICLOFENAC
  17. LEVOTHYROXINE [Concomitant]
     Active Substance: LEVOTHYROXINE
  18. MONTELUKAST [Concomitant]
     Active Substance: MONTELUKAST
  19. SIMVASTATIN [Concomitant]
     Active Substance: SIMVASTATIN

REACTIONS (1)
  - Inappropriate schedule of product administration [Unknown]
